FAERS Safety Report 17127409 (Version 1)
Quarter: 2019Q4

REPORT INFORMATION
  Report Type: Report from Study
  Country: US (occurrence: US)
  Receive Date: 20191209
  Receipt Date: 20191209
  Transmission Date: 20200122
  Serious: Yes (Other)
  Sender: FDA-Public Use
  Company Number: US-ROCHE-2412393

PATIENT
  Sex: Male

DRUGS (1)
  1. ESBRIET [Suspect]
     Active Substance: PIRFENIDONE
     Indication: IDIOPATHIC PULMONARY FIBROSIS
     Route: 048
     Dates: start: 20190828

REACTIONS (5)
  - Dyspnoea [Not Recovered/Not Resolved]
  - Nausea [Recovered/Resolved with Sequelae]
  - Feeding disorder [Not Recovered/Not Resolved]
  - Pemphigoid [Recovered/Resolved with Sequelae]
  - Insomnia [Not Recovered/Not Resolved]
